FAERS Safety Report 5904289-9 (Version None)
Quarter: 2008Q3

REPORT INFORMATION
  Report Type: 
  Country: None (occurrence: None)
  Receive Date: 20080930
  Receipt Date: 20080930
  Transmission Date: 20090109
  Serious: Yes (Other)
  Sender: FDA-Public Use
  Company Number: None

PATIENT
  Age: 66 Year
  Sex: Female
  Weight: 90.7194 kg

DRUGS (1)
  1. CEPHALEXIN [Suspect]
     Indication: POST PROCEDURAL INFECTION
     Dosage: 2 CAPSULES TWICE DAILY FOR 10 2X DAY PO
     Route: 048
     Dates: start: 20080922, end: 20080925

REACTIONS (8)
  - ARTHRALGIA [None]
  - ARTHRITIS [None]
  - ARTHROPATHY [None]
  - MOVEMENT DISORDER [None]
  - PAIN [None]
  - RED BLOOD CELL SEDIMENTATION RATE INCREASED [None]
  - SLEEP DISORDER [None]
  - WHITE BLOOD CELL COUNT INCREASED [None]
